FAERS Safety Report 7431143-6 (Version None)
Quarter: 2011Q2

REPORT INFORMATION
  Report Type: 
  Country: None (occurrence: None)
  Receive Date: 20110421
  Receipt Date: 20101126
  Transmission Date: 20111010
  Serious: Yes (Hospitalization)
  Sender: FDA-Public Use
  Company Number: JP-BAYER-201015546BYL

PATIENT
  Age: 39 Year
  Sex: Female

DRUGS (4)
  1. WARFARIN POTASSIUM [Suspect]
     Indication: PRODUCT USED FOR UNKNOWN INDICATION
     Route: 048
     Dates: start: 20100127
  2. ASPIRIN [Suspect]
     Indication: PRODUCT USED FOR UNKNOWN INDICATION
     Route: 048
     Dates: start: 20100127
  3. GENTAMICIN [Concomitant]
     Indication: ENDOCARDITIS
     Route: 042
     Dates: start: 20100127
  4. PENICILLIN G [Concomitant]
     Indication: ENDOCARDITIS
     Route: 042
     Dates: start: 20100127

REACTIONS (1)
  - MELAENA [None]
